FAERS Safety Report 4715025-6 (Version None)
Quarter: 2005Q2

REPORT INFORMATION
  Report Type: 
  Country: None (occurrence: None)
  Receive Date: 20050630
  Receipt Date: 20050413
  Transmission Date: 20051028
  Serious: Yes (Life-Threatening)
  Sender: FDA-Public Use
  Company Number: 213798

PATIENT
  Age: 63 Year
  Sex: Male
  Weight: 77.6 kg

DRUGS (4)
  1. AVASTIN [Suspect]
     Indication: COLON CANCER METASTATIC
     Dates: start: 20050215
  2. LEUCOVORIN CALCIUM [Concomitant]
  3. OXALIPLATIN (OXALIPLATIN) [Concomitant]
  4. FLUOROURACIL [Concomitant]

REACTIONS (2)
  - DIVERTICULAR PERFORATION [None]
  - DUODENAL PERFORATION [None]
